FAERS Safety Report 13037193 (Version 2)
Quarter: 2017Q4

REPORT INFORMATION
  Report Type: Spontaneous
  Country: US (occurrence: US)
  Receive Date: 20161216
  Receipt Date: 20171114
  Transmission Date: 20180320
  Serious: Yes (Life-Threatening)
  Sender: FDA-Public Use
  Company Number: US-PFIZER INC-2016575422

PATIENT
  Age: 69 Year
  Sex: Female

DRUGS (1)
  1. SODIUM BICARBONATE. [Suspect]
     Active Substance: SODIUM BICARBONATE
     Indication: BREAST MASS
     Dosage: UNK
     Route: 061

REACTIONS (2)
  - Overdose [Unknown]
  - Metabolic alkalosis [Unknown]
